FAERS Safety Report 4685874-1 (Version None)
Quarter: 2005Q2

REPORT INFORMATION
  Report Type: 
  Country: None (occurrence: None)
  Receive Date: 20050606
  Receipt Date: 20050606
  Transmission Date: 20051028
  Serious: Yes (Other)
  Sender: FDA-Public Use
  Company Number: None

PATIENT
  Sex: Male
  Weight: 82.8 kg

DRUGS (2)
  1. EMCYT 140 MG 1 P.O. BID 5 DAYS PER WEEK [Suspect]
     Indication: PROSTATE CANCER
     Dosage: 140 MG 1 P.O. BID 5 DAYS PER WEEK
     Route: 048
     Dates: start: 20050501
  2. TAXOTERE 40 MG/M2 IV ON DAY 2 WEEKLY FOR 6 WEEKS FOLLOWED BY 2 WEEKS R [Suspect]
     Indication: PROSTATE CANCER
     Dosage: 40 MG/M2 IV ON DAY 2 WEEKLY FOR 6 WEEKS FOLLOWED BY 2 WEEKS REST THEN 6 MORE WEEKS OF EMCYT/TAXOTER
     Route: 042

REACTIONS (11)
  - ASTHENIA [None]
  - BLOOD CULTURE POSITIVE [None]
  - CATHETER RELATED INFECTION [None]
  - CATHETER SITE DISCHARGE [None]
  - CHILLS [None]
  - CULTURE WOUND POSITIVE [None]
  - HYPOCALCAEMIA [None]
  - HYPOKALAEMIA [None]
  - HYPONATRAEMIA [None]
  - STAPHYLOCOCCAL INFECTION [None]
  - TREMOR [None]
